FAERS Safety Report 15380240 (Version 2)
Quarter: 2018Q4

REPORT INFORMATION
  Report Type: Spontaneous
  Country: FR (occurrence: FR)
  Receive Date: 20180913
  Receipt Date: 20181010
  Transmission Date: 20190204
  Serious: Yes (Other)
  Sender: FDA-Public Use
  Company Number: FR-FERRINGPH-2018FE04984

PATIENT

DRUGS (3)
  1. LUTRELEF [Suspect]
     Active Substance: GONADORELIN
     Dosage: UNK
     Route: 065
     Dates: start: 2017, end: 2017
  2. LUTRELEF [Suspect]
     Active Substance: GONADORELIN
     Indication: PRODUCT USED FOR UNKNOWN INDICATION
     Dosage: 10 ?G, EVERY 90 MIN
     Route: 065
     Dates: start: 20180905, end: 20180905
  3. LUTRELEF [Suspect]
     Active Substance: GONADORELIN
     Dosage: UNK
     Route: 065
     Dates: start: 201808, end: 201808

REACTIONS (5)
  - Oedema [Recovered/Resolved]
  - Erythema [Recovered/Resolved]
  - Hypersensitivity [Recovered/Resolved]
  - Abdominal pain [Recovered/Resolved]
  - Pruritus generalised [Recovered/Resolved]

NARRATIVE: CASE EVENT DATE: 20180905
